FAERS Safety Report 6961029-2 (Version None)
Quarter: 2010Q3

REPORT INFORMATION
  Report Type: 
  Country: None (occurrence: None)
  Receive Date: 20100901
  Receipt Date: 20100823
  Transmission Date: 20110219
  Serious: Yes (Hospitalization)
  Sender: FDA-Public Use
  Company Number: JP-MERCK-1006USA03033

PATIENT
  Age: 66 Year
  Sex: Female

DRUGS (4)
  1. JANUVIA [Suspect]
     Indication: TYPE 2 DIABETES MELLITUS
     Route: 048
     Dates: start: 20100302, end: 20100601
  2. PARIET [Concomitant]
     Route: 065
     Dates: start: 20090925, end: 20100601
  3. LIVALO [Concomitant]
     Route: 065
     Dates: start: 20080219, end: 20100601
  4. MELBIN [Concomitant]
     Route: 065
     Dates: start: 20091110, end: 20100601

REACTIONS (1)
  - HAEMOLYTIC ANAEMIA [None]
